FAERS Safety Report 22181849 (Version 5)
Quarter: 2023Q2

REPORT INFORMATION
  Report Type: Report from Study
  Country: BE (occurrence: BE)
  Receive Date: 20230406
  Receipt Date: 20230511
  Transmission Date: 20230722
  Serious: Yes (Death, Life-Threatening, Hospitalization)
  Sender: FDA-Public Use
  Company Number: BE-DSJP-DSU-2023-111988

PATIENT
  Age: 40 Year
  Sex: Male
  Weight: 47 kg

DRUGS (3)
  1. MEDROL [Suspect]
     Active Substance: METHYLPREDNISOLONE
     Indication: Metastases to central nervous system
     Dosage: 32 MG, DAILY
     Route: 048
     Dates: start: 20220118, end: 20220319
  2. MEDROL [Suspect]
     Active Substance: METHYLPREDNISOLONE
     Dosage: 32 MG, DAILY
     Route: 048
     Dates: start: 202211
  3. ENHERTU [Suspect]
     Active Substance: FAM-TRASTUZUMAB DERUXTECAN-NXKI
     Indication: HER2 positive breast cancer
     Dosage: 241 MG, EVERY 3 WEEKS
     Route: 042
     Dates: start: 20221208, end: 20230319

REACTIONS (3)
  - Oral candidiasis [Fatal]
  - Pneumonitis [Fatal]
  - Off label use [Unknown]

NARRATIVE: CASE EVENT DATE: 20230318
